FAERS Safety Report 6094837-3 (Version None)
Quarter: 2009Q1

REPORT INFORMATION
  Report Type: 
  Country: None (occurrence: None)
  Receive Date: 20090223
  Receipt Date: 20080505
  Transmission Date: 20090719
  Serious: Yes (Death, Other)
  Sender: FDA-Public Use
  Company Number: 080509-0000410

PATIENT
  Age: 28 Year
  Sex: Male

DRUGS (3)
  1. DESOXYN [Suspect]
     Indication: DRUG USE FOR UNKNOWN INDICATION
     Dosage: PO
     Route: 048
  2. OPANA ER [Suspect]
     Indication: DRUG USE FOR UNKNOWN INDICATION
  3. OXYCODONE 2.5/APAP 500 [Suspect]
     Indication: DRUG USE FOR UNKNOWN INDICATION

REACTIONS (1)
  - OVERDOSE [None]
